FAERS Safety Report 11597101 (Version 2)
Quarter: 2015Q4

REPORT INFORMATION
  Report Type: Spontaneous
  Country: US (occurrence: US)
  Receive Date: 20151006
  Receipt Date: 20151105
  Transmission Date: 20160304
  Serious: Yes (Other)
  Sender: FDA-Public Use
  Company Number: US-SIGMAPHARM LABORATORIES, LLC-2015SIG00033

PATIENT
  Age: 52 Year
  Sex: Female
  Weight: 88.44 kg

DRUGS (11)
  1. LIOTHYRONINE SODIUM. [Suspect]
     Active Substance: LIOTHYRONINE SODIUM
     Indication: HYPOTHYROIDISM
     Dosage: 5 ?G, 1X/DAY
     Route: 048
     Dates: start: 201411, end: 201505
  2. IMITREX [Concomitant]
     Active Substance: SUMATRIPTAN\SUMATRIPTAN SUCCINATE
     Dosage: 100 MG; 1X/DAY AS NEEDED
  3. ESTRADIOL. [Concomitant]
     Active Substance: ESTRADIOL
     Dosage: 2 MG, 1X/DAY; ALSO REPORTED AS 1.5 TABLETS 1X/DAY
     Dates: start: 2012, end: 20150619
  4. SYNTHROID [Concomitant]
     Active Substance: LEVOTHYROXINE SODIUM
     Dosage: 125 ?G, 1X/DAY
     Dates: start: 201507, end: 20150827
  5. LIOTHYRONINE SODIUM. [Suspect]
     Active Substance: LIOTHYRONINE SODIUM
     Dosage: 5 ?G, 2X/DAY
     Route: 048
     Dates: start: 201505, end: 20150619
  6. SYNTHROID [Concomitant]
     Active Substance: LEVOTHYROXINE SODIUM
     Dosage: 125 ?G, 1X/DAY
     Dates: end: 20150619
  7. VALACYCLOVIR HCL [Concomitant]
     Active Substance: VALACYCLOVIR HYDROCHLORIDE
     Dosage: 500 MG, 1X/DAY
  8. TIROSINT [Concomitant]
     Active Substance: LEVOTHYROXINE SODIUM
     Dosage: 125 UNK, 1X/DAY
  9. PROMETRIUM [Concomitant]
     Active Substance: PROGESTERONE
     Dosage: 100 MG, 1X/DAY
  10. NADOLOL. [Concomitant]
     Active Substance: NADOLOL
     Dosage: 20 MG, 1X/DAY; CAN TITRATE PER NEURO UP TO 3 DAILY
  11. OTC VITAMIN D [Concomitant]

REACTIONS (17)
  - Blood glucose increased [Unknown]
  - Overdose [Recovering/Resolving]
  - Product quality issue [None]
  - Diplopia [None]
  - Dizziness [None]
  - Paraesthesia [Unknown]
  - Listeriosis [Recovering/Resolving]
  - Migraine [Unknown]
  - Adrenal insufficiency [Recovering/Resolving]
  - Diarrhoea [None]
  - Tinnitus [Recovering/Resolving]
  - Chest discomfort [Unknown]
  - Tremor [Unknown]
  - Productive cough [Unknown]
  - Insomnia [None]
  - Hypersensitivity [Recovering/Resolving]
  - Migraine with aura [None]

NARRATIVE: CASE EVENT DATE: 2015
